FAERS Safety Report 13998223 (Version 3)
Quarter: 2017Q4

REPORT INFORMATION
  Report Type: Spontaneous
  Country: FR (occurrence: FR)
  Receive Date: 20170921
  Receipt Date: 20171208
  Transmission Date: 20180321
  Serious: Yes (Other)
  Sender: FDA-Public Use
  Company Number: PHHY2017FR135971

PATIENT
  Age: 85 Year
  Sex: Female

DRUGS (7)
  1. ZOPHREN [Suspect]
     Active Substance: ONDANSETRON
     Indication: CHEMOTHERAPY
     Dosage: 8 MG, QW (4 WEEKS OUT OF 5)
     Route: 065
     Dates: start: 201504, end: 201511
  2. CARBOPLATIN. [Concomitant]
     Active Substance: CARBOPLATIN
     Indication: METASTATIC LYMPHOMA
     Route: 065
  3. SOLU-MEDROL [Suspect]
     Active Substance: METHYLPREDNISOLONE SODIUM SUCCINATE
     Indication: CHEMOTHERAPY
     Route: 065
  4. POLARAMINE [Suspect]
     Active Substance: DEXCHLORPHENIRAMINE MALEATE
     Indication: CHEMOTHERAPY
     Route: 065
  5. ZOPHREN [Suspect]
     Active Substance: ONDANSETRON
     Dosage: 8 MG, QW (4 WEEKS OUT OF 5)
     Route: 065
     Dates: start: 20170421
  6. TAXOL [Concomitant]
     Active Substance: PACLITAXEL
     Indication: METASTATIC LYMPHOMA
     Route: 065
  7. AZANTAC [Suspect]
     Active Substance: RANITIDINE HYDROCHLORIDE
     Indication: CHEMOTHERAPY
     Dosage: UNK
     Route: 065
     Dates: start: 20170421, end: 201708

REACTIONS (12)
  - Hypertensive crisis [Unknown]
  - Vertigo [Unknown]
  - Anaphylactic shock [Unknown]
  - Hypotension [Unknown]
  - Malaise [Unknown]
  - Neutrophil count decreased [Unknown]
  - Haematuria [Unknown]
  - Back pain [Unknown]
  - Loss of consciousness [Unknown]
  - Cough [Unknown]
  - Somnolence [Unknown]
  - Dizziness [Unknown]

NARRATIVE: CASE EVENT DATE: 201707
